FAERS Safety Report 5069979-1 (Version None)
Quarter: 2006Q3

REPORT INFORMATION
  Report Type: 
  Country: None (occurrence: None)
  Receive Date: 20060731
  Receipt Date: 20060725
  Transmission Date: 20061208
  Serious: Yes (Other)
  Sender: FDA-Public Use
  Company Number: URSO-2006-028

PATIENT
  Age: 81 Year
  Sex: Female

DRUGS (5)
  1. URSODIOL [Suspect]
     Indication: CHOLELITHIASIS
     Dosage: 300 MG PO
     Route: 048
     Dates: start: 20040412, end: 20051117
  2. CAPTOPRIL [Suspect]
     Dates: start: 20010705, end: 20040506
  3. ROCALTROL [Concomitant]
  4. MYONABASE (EPERISONE HYDROCHLORIDE) [Concomitant]
  5. AMLODIPINE BESYLATE [Concomitant]

REACTIONS (12)
  - ASTHMA [None]
  - BLOOD ALKALINE PHOSPHATASE INCREASED [None]
  - CHOLELITHIASIS [None]
  - DIARRHOEA [None]
  - EOSINOPHIL COUNT DECREASED [None]
  - FACE OEDEMA [None]
  - GAMMA-GLUTAMYLTRANSFERASE INCREASED [None]
  - HYPERSENSITIVITY [None]
  - INTERSTITIAL LUNG DISEASE [None]
  - ORAL PAIN [None]
  - RALES [None]
  - RHEUMATOID ARTHRITIS [None]
